FAERS Safety Report 5837059-0 (Version None)
Quarter: 2008Q3

REPORT INFORMATION
  Report Type: 
  Country: None (occurrence: None)
  Receive Date: 20080731
  Receipt Date: 20080609
  Transmission Date: 20090109
  Serious: No
  Sender: FDA-Public Use
  Company Number: US200806002144

PATIENT
  Age: 80 Year
  Sex: Female

DRUGS (2)
  1. BYETTA [Suspect]
     Indication: DIABETES MELLITUS
     Dosage: 5 UG
     Dates: start: 20080606
  2. METFORMIN HCL [Concomitant]

REACTIONS (4)
  - ARTHRITIS [None]
  - HYPOACUSIS [None]
  - INJECTION SITE DISCOMFORT [None]
  - VISUAL ACUITY REDUCED [None]
